FAERS Safety Report 8240912-4 (Version None)
Quarter: 2012Q1

REPORT INFORMATION
  Report Type: 
  Country: None (occurrence: None)
  Receive Date: 20120328
  Receipt Date: 20120321
  Transmission Date: 20120608
  Serious: Yes (Hospitalization)
  Sender: FDA-Public Use
  Company Number: US-BAYER-2011-107092

PATIENT
  Age: 18 Year
  Sex: Female

DRUGS (6)
  1. SULFAMETHOXAZOLE + TRIMETHOPRIM [Concomitant]
     Dosage: UNK UNK, BID
     Route: 048
     Dates: start: 20091120
  2. DICYCLOMINE [Concomitant]
     Dosage: UNK UNK, PRN
     Route: 048
     Dates: start: 20091101
  3. YAZ [Suspect]
     Dosage: UNK
     Route: 048
     Dates: start: 20090901, end: 20091001
  4. PROCHLORPERAZINE [Concomitant]
     Dosage: 10 MG, PRN
     Dates: start: 20091120
  5. HYDROCODONE BITARTRATE AND ACETAMINOPHEN [Concomitant]
     Dosage: UNK
     Route: 048
     Dates: start: 20091120
  6. YAZ [Suspect]
     Indication: MENSTRUATION IRREGULAR
     Dosage: UNK
     Route: 048
     Dates: start: 20080310, end: 20081101

REACTIONS (5)
  - PAIN [None]
  - ABDOMINAL PAIN [None]
  - BILIARY DYSKINESIA [None]
  - GALLBLADDER DISORDER [None]
  - CHOLECYSTITIS CHRONIC [None]
